FAERS Safety Report 10649426 (Version 2)
Quarter: 2014Q4

REPORT INFORMATION
  Report Type: Report from Study
  Country: BR (occurrence: BR)
  Receive Date: 20141212
  Receipt Date: 20141229
  Transmission Date: 20150529
  Serious: Yes (Other)
  Sender: FDA-Public Use
  Company Number: PHHY2014BR163043

PATIENT
  Age: 60 Year
  Sex: Female
  Weight: 38 kg

DRUGS (2)
  1. SYNTHROID [Concomitant]
     Active Substance: LEVOTHYROXINE SODIUM
     Indication: THYROID DISORDER
     Dosage: 1 DF, QD
     Route: 065
     Dates: start: 2002
  2. ACLASTA [Suspect]
     Active Substance: ZOLEDRONIC ACID
     Indication: OSTEOPOROSIS
     Dosage: UNK, YEARLY
     Route: 042
     Dates: start: 20131122

REACTIONS (3)
  - Spinal fracture [Unknown]
  - Fall [Unknown]
  - Skeletal injury [Unknown]

NARRATIVE: CASE EVENT DATE: 20131216
